FAERS Safety Report 16911890 (Version 1)
Quarter: 2019Q4

REPORT INFORMATION
  Report Type: Spontaneous
  Country: US (occurrence: US)
  Receive Date: 20191014
  Receipt Date: 20191014
  Transmission Date: 20200122
  Serious: No
  Sender: FDA-Public Use
  Company Number: US-SA-2019SA277426

PATIENT
  Age: 70 Year
  Sex: Female

DRUGS (2)
  1. PRALUENT [Suspect]
     Active Substance: ALIROCUMAB
     Dosage: 75 MG, QOW
  2. ZETIA [Concomitant]
     Active Substance: EZETIMIBE

REACTIONS (2)
  - Arthralgia [Unknown]
  - Myalgia [Unknown]
